FAERS Safety Report 6568925-9 (Version None)
Quarter: 2010Q1

REPORT INFORMATION
  Report Type: 
  Country: None (occurrence: None)
  Receive Date: 20100203
  Receipt Date: 20100128
  Transmission Date: 20100710
  Serious: Yes (Other)
  Sender: FDA-Public Use
  Company Number: US-ABBOTT-10P-163-0622873-00

PATIENT
  Sex: Male

DRUGS (5)
  1. HUMIRA [Suspect]
     Indication: RHEUMATOID ARTHRITIS
     Dates: end: 20091101
  2. METHOTREXATE [Concomitant]
     Indication: RHEUMATOID ARTHRITIS
     Dates: end: 20091101
  3. LISINOPRIL [Concomitant]
     Indication: DRUG USE FOR UNKNOWN INDICATION
     Route: 048
     Dates: end: 20091201
  4. LIPITOR [Concomitant]
     Indication: DRUG USE FOR UNKNOWN INDICATION
     Route: 048
     Dates: end: 20091201
  5. FOLIC ACID [Concomitant]
     Indication: RHEUMATOID ARTHRITIS
     Dates: end: 20091201

REACTIONS (6)
  - BLOOD GLUCOSE ABNORMAL [None]
  - COLON CANCER [None]
  - COLON NEOPLASM [None]
  - NEOPLASM MALIGNANT [None]
  - PROSTATIC DISORDER [None]
  - PROSTATIC SPECIFIC ANTIGEN INCREASED [None]
